FAERS Safety Report 7922952 (Version 10)
Quarter: 2013Q2

REPORT INFORMATION
  Report Type: Spontaneous
  Country: US (occurrence: US)
  Receive Date: 20110429
  Receipt Date: 20130408
  Transmission Date: 20140414
  Serious: Yes (Hospitalization, Other)
  Sender: FDA-Public Use
  Company Number: US-ASTRAZENECA-2010SE18587

PATIENT
  Age: 61 Year
  Sex: Female

DRUGS (1)
  1. NEXIUM [Suspect]
     Indication: GASTROOESOPHAGEAL REFLUX DISEASE
     Route: 048

REACTIONS (11)
  - Gastrooesophageal reflux disease [Unknown]
  - Neoplasm malignant [Unknown]
  - Hiatus hernia [Unknown]
  - Gastric disorder [Unknown]
  - Dyspepsia [Unknown]
  - Rebound effect [Unknown]
  - Dysstasia [Unknown]
  - Malaise [Unknown]
  - Diarrhoea [Unknown]
  - Vomiting [Unknown]
  - Drug dose omission [Unknown]
